FAERS Safety Report 8853468 (Version 1)
Quarter: 2012Q4

REPORT INFORMATION
  Report Type: 
  Country: US (occurrence: US)
  Receive Date: 20121022
  Receipt Date: 20121022
  Transmission Date: 20130627
  Serious: Yes (Life-Threatening, Hospitalization, Other)
  Sender: FDA-Public Use
  Company Number: US-BAYER-2012-107278

PATIENT
  Age: 62 Year
  Sex: Female
  Weight: 99.77 kg

DRUGS (1)
  1. ALKA-SELTZER ORIGINAL [Suspect]
     Indication: ABDOMINAL DISCOMFORT
     Dosage: 2 TAB, PRN
     Route: 048
     Dates: start: 2004, end: 200604

REACTIONS (12)
  - Oedema peripheral [None]
  - Pain in extremity [None]
  - Pericardial calcification [None]
  - Hypernatraemia [None]
  - Gastric ulcer haemorrhage [Recovered/Resolved]
  - Haemorrhage [Recovered/Resolved]
  - Myocardial infarction [Recovered/Resolved]
  - Transient ischaemic attack [None]
  - Amnesia [None]
  - Pericardial effusion [None]
  - Chest pain [None]
  - Cardiac operation [None]
